FAERS Safety Report 11108607 (Version 1)
Quarter: 2015Q2

REPORT INFORMATION
  Report Type: Spontaneous
  Country: IT (occurrence: IT)
  Receive Date: 20150513
  Receipt Date: 20150513
  Transmission Date: 20150821
  Serious: Yes (Other)
  Sender: FDA-Public Use
  Company Number: IT-ROCHE-1574898

PATIENT
  Age: 66 Year
  Sex: Female

DRUGS (1)
  1. ZELBORAF [Suspect]
     Active Substance: VEMURAFENIB
     Indication: PRODUCT USED FOR UNKNOWN INDICATION
     Dosage: MG - FILM-COATED TABLET
     Route: 048
     Dates: start: 20140613, end: 20140711

REACTIONS (3)
  - Palmoplantar keratoderma [Recovering/Resolving]
  - Atrial fibrillation [Recovering/Resolving]
  - Skin papilloma [Recovering/Resolving]

NARRATIVE: CASE EVENT DATE: 20140711
